FAERS Safety Report 5656180-3 (Version None)
Quarter: 2008Q1

REPORT INFORMATION
  Report Type: 
  Country: None (occurrence: None)
  Receive Date: 20080305
  Receipt Date: 20080221
  Transmission Date: 20080703
  Serious: Yes (Hospitalization, Other)
  Sender: FDA-Public Use
  Company Number: 056-21880-08010276

PATIENT
  Age: 48 Year
  Sex: Female

DRUGS (6)
  1. REVLIMID [Suspect]
     Indication: MULTIPLE MYELOMA
     Dosage: 25 MG, DAILY, ORAL, 10 MG, 1 IN 1 D, ORAL
     Route: 048
     Dates: start: 20080109, end: 20080130
  2. REVLIMID [Suspect]
     Indication: MULTIPLE MYELOMA
     Dosage: 25 MG, DAILY, ORAL, 10 MG, 1 IN 1 D, ORAL
     Route: 048
     Dates: start: 20071227
  3. DEXAMETHASONE TAB [Concomitant]
  4. ACETYLSALICYLIC ACID SRT [Concomitant]
  5. AMARYL [Concomitant]
  6. GLUCOPHAGE [Concomitant]

REACTIONS (5)
  - CYTOLYTIC HEPATITIS [None]
  - HAEMOGLOBIN DECREASED [None]
  - PLATELET COUNT DECREASED [None]
  - SLEEP APNOEA SYNDROME [None]
  - TUMOUR LYSIS SYNDROME [None]
